FAERS Safety Report 20139721 (Version 1)
Quarter: 2021Q4

REPORT INFORMATION
  Report Type: Spontaneous
  Country: US (occurrence: None)
  Receive Date: 20211201
  Receipt Date: 20211201
  Transmission Date: 20220303
  Serious: Yes (Other)
  Sender: FDA-Public Use
  Company Number: None

PATIENT
  Age: 42 Year
  Sex: Male
  Weight: 90 kg

DRUGS (4)
  1. REGEN-COV [Suspect]
     Active Substance: CASIRIVIMAB\IMDEVIMAB
     Indication: COVID-19
     Dosage: OTHER FREQUENCY : ONE TIME ONLY;?
     Route: 042
     Dates: start: 20211130, end: 20211130
  2. LUCINIPRIL [Concomitant]
  3. VITAMINS [Concomitant]
     Active Substance: VITAMINS
  4. BEET ROOT CHEWABLE [Concomitant]

REACTIONS (4)
  - Chest pain [None]
  - Dyspnoea [None]
  - Painful respiration [None]
  - Sensory disturbance [None]

NARRATIVE: CASE EVENT DATE: 20211130
